FAERS Safety Report 11452239 (Version 4)
Quarter: 2016Q3

REPORT INFORMATION
  Report Type: Report from Study
  Country: CA (occurrence: CA)
  Receive Date: 20150903
  Receipt Date: 20160929
  Transmission Date: 20161109
  Serious: Yes (Other)
  Sender: FDA-Public Use
  Company Number: CA-ROCHE-1627832

PATIENT
  Sex: Female

DRUGS (11)
  1. FERROUS SULFATE. [Concomitant]
     Active Substance: FERROUS SULFATE
  2. PREDNISONE. [Concomitant]
     Active Substance: PREDNISONE
  3. SYNTHROID [Concomitant]
     Active Substance: LEVOTHYROXINE SODIUM
  4. FUROSEMIDE. [Concomitant]
     Active Substance: FUROSEMIDE
  5. INSULIN [Concomitant]
     Active Substance: INSULIN NOS
  6. ALDACTONE [Concomitant]
     Active Substance: SPIRONOLACTONE
  7. RITUXAN [Suspect]
     Active Substance: RITUXIMAB
     Indication: MYOSITIS
  8. ALENDRONATE [Concomitant]
     Active Substance: ALENDRONATE SODIUM
  9. PANTOPRAZOLE [Concomitant]
     Active Substance: PANTOPRAZOLE SODIUM
  10. ROSUVASTATIN. [Concomitant]
     Active Substance: ROSUVASTATIN
  11. RITUXAN [Suspect]
     Active Substance: RITUXIMAB
     Indication: RHEUMATOID ARTHRITIS
     Dosage: DAY 1 AND DAY 15?LAST DOSE: 29/MAR/2016
     Route: 042
     Dates: start: 20150304

REACTIONS (2)
  - Tuberculosis [Not Recovered/Not Resolved]
  - Cataract [Unknown]
